FAERS Safety Report 4787074-3 (Version None)
Quarter: 2005Q3

REPORT INFORMATION
  Report Type: 
  Country: None (occurrence: None)
  Receive Date: 20050930
  Receipt Date: 20050909
  Transmission Date: 20060218
  Serious: Yes (Hospitalization)
  Sender: FDA-Public Use
  Company Number: DKLU1016998

PATIENT
  Age: 62 Year
  Sex: Female

DRUGS (3)
  1. RISPERIDONE [Suspect]
     Indication: SCHIZOPHRENIA
     Dosage: 2 MILLIGRAM(S), ORAL
     Route: 048
     Dates: start: 20040315
  2. SENOKOT (SENNA FRUIT) (TABLET) [Concomitant]
  3. SANGOBION (SANGOBION) (TABLET) [Concomitant]

REACTIONS (10)
  - CONSTIPATION [None]
  - EOSINOPHIL COUNT INCREASED [None]
  - HAEMOGLOBIN DECREASED [None]
  - LYMPHOCYTE COUNT DECREASED [None]
  - LYMPHOCYTE PERCENTAGE DECREASED [None]
  - NEUTROPHIL COUNT INCREASED [None]
  - NEUTROPHIL PERCENTAGE INCREASED [None]
  - PAIN [None]
  - RED BLOOD CELL COUNT DECREASED [None]
  - UTEROVAGINAL PROLAPSE [None]
